FAERS Safety Report 16142889 (Version 1)
Quarter: 2019Q2

REPORT INFORMATION
  Report Type: Report from Study
  Country: US (occurrence: US)
  Receive Date: 20190401
  Receipt Date: 20190401
  Transmission Date: 20190711
  Serious: Yes (Other)
  Sender: FDA-Public Use
  Company Number: US-BAUSCH-BL-2019-009517

PATIENT
  Sex: Female

DRUGS (1)
  1. RELISTOR [Suspect]
     Active Substance: METHYLNALTREXONE BROMIDE
     Indication: PRODUCT USED FOR UNKNOWN INDICATION
     Route: 065

REACTIONS (6)
  - Cardiac failure [Not Recovered/Not Resolved]
  - Malaise [Not Recovered/Not Resolved]
  - Victim of crime [Unknown]
  - Fatigue [Not Recovered/Not Resolved]
  - Breast cancer stage IV [Not Recovered/Not Resolved]
  - Burglary victim [Unknown]
